FAERS Safety Report 25686275 (Version 1)
Quarter: 2025Q3

REPORT INFORMATION
  Report Type: Spontaneous
  Country: JP (occurrence: JP)
  Receive Date: 20250815
  Receipt Date: 20250815
  Transmission Date: 20251020
  Serious: Yes (Hospitalization, Other)
  Sender: MERCK SHARP & DOHME LLC
  Company Number: JP-MSD-M2023-23880

PATIENT
  Age: 50 Year
  Sex: Female

DRUGS (3)
  1. KEYTRUDA [Suspect]
     Active Substance: PEMBROLIZUMAB
     Indication: Triple negative breast cancer
     Dosage: DOSE DESCRIPTION : 200 MILLIGRAM, Q3W?DAILY DOSE : 9.4 MILLIGRAM?REGIMEN DOSE : 200  MILLIGRAM
     Route: 041
     Dates: start: 202302, end: 202306
  2. PACLITAXEL [Concomitant]
     Active Substance: PACLITAXEL
     Dosage: DOSE DESCRIPTION : 80 MILLIGRAM, QW?DAILY DOSE : 11.44 MILLIGRAM?REGIMEN DOSE : 80  MILLIGRAM
     Route: 041
     Dates: start: 202302, end: 202306
  3. CARBOPLATIN [Concomitant]
     Active Substance: CARBOPLATIN
     Dosage: DOSE DESCRIPTION : 225 MILLIGRAM, QW?DAILY DOSE : 32.175 MILLIGRAM?REGIMEN DOSE : 225  MILLIGRAM
     Route: 041
     Dates: start: 202302, end: 202306

REACTIONS (1)
  - Autoimmune hepatitis [Recovered/Resolved]

NARRATIVE: CASE EVENT DATE: 20230601
